FAERS Safety Report 6911834-3 (Version None)
Quarter: 2010Q3

REPORT INFORMATION
  Report Type: 
  Country: None (occurrence: None)
  Receive Date: 20100806
  Receipt Date: 20070806
  Transmission Date: 20110219
  Serious: No
  Sender: FDA-Public Use
  Company Number: US-PFIZER INC-2007065212

PATIENT
  Sex: Female
  Weight: 63.181 kg

DRUGS (3)
  1. DETROL LA [Suspect]
     Indication: BLADDER SPASM
     Dates: start: 20070701
  2. SYNTHROID [Concomitant]
     Indication: THYROID DISORDER
  3. METHYLPHENIDATE HCL [Concomitant]
     Indication: ATTENTION DEFICIT/HYPERACTIVITY DISORDER

REACTIONS (2)
  - EYELID OEDEMA [None]
  - OEDEMA PERIPHERAL [None]
